FAERS Safety Report 10241686 (Version 1)
Quarter: 2014Q2

REPORT INFORMATION
  Report Type: Spontaneous
  Country: US (occurrence: None)
  Receive Date: 20140613
  Receipt Date: 20140613
  Transmission Date: 20141212
  Serious: Yes (Hospitalization)
  Sender: FDA-Public Use
  Company Number: UNT-2014-001649

PATIENT
  Age: 64 Year
  Sex: Female
  Weight: 52.6 kg

DRUGS (1)
  1. REMODULIN (TREPROSTINIL SODIUM) INJECTION, 10MG/ML [Suspect]
     Indication: COR PULMONALE CHRONIC
     Dosage: 0.26 UG/KG, CONTINUING, IV DRIP
     Route: 041
     Dates: start: 20050425

REACTIONS (2)
  - Respiratory distress [None]
  - Infection [None]
